FAERS Safety Report 15889942 (Version 1)
Quarter: 2019Q1

REPORT INFORMATION
  Report Type: Spontaneous
  Country: US (occurrence: US)
  Receive Date: 20190130
  Receipt Date: 20190130
  Transmission Date: 20190417
  Serious: No
  Sender: FDA-Public Use
  Company Number: US-GLAXOSMITHKLINE-US2019011758

PATIENT
  Sex: Female

DRUGS (4)
  1. COREG [Suspect]
     Active Substance: CARVEDILOL
     Indication: HYPERTENSION
     Dosage: 3.125 MG, TID
  2. CARVEDILOL TABLET [Suspect]
     Active Substance: CARVEDILOL
     Indication: HYPERTENSION
     Dosage: UNK UNK, U
  3. COREG [Suspect]
     Active Substance: CARVEDILOL
     Dosage: UNK UNK, BID
  4. COREG CR [Suspect]
     Active Substance: CARVEDILOL PHOSPHATE
     Indication: HYPERTENSION
     Dosage: UNK UNK, U

REACTIONS (5)
  - Blood pressure increased [Unknown]
  - Off label use [Unknown]
  - Drug ineffective [Unknown]
  - Drug effect incomplete [Unknown]
  - Overdose [Unknown]
